FAERS Safety Report 8375587-7 (Version None)
Quarter: 2012Q2

REPORT INFORMATION
  Report Type: 
  Country: None (occurrence: None)
  Receive Date: 20120517
  Receipt Date: 20120517
  Transmission Date: 20120825
  Serious: Yes (Hospitalization)
  Sender: FDA-Public Use
  Company Number: None

PATIENT
  Age: 81 Year
  Sex: Male
  Weight: 84.8226 kg

DRUGS (9)
  1. SIMVASTATIN [Concomitant]
  2. FUROSEMIDE [Concomitant]
  3. METOPROLOL [Concomitant]
  4. NORVASC [Concomitant]
  5. ISOSORBIDE DINITRATE [Concomitant]
  6. PLAVIX [Concomitant]
  7. DILTIAZEM [Concomitant]
  8. TARCEVA [Suspect]
     Indication: NON-SMALL CELL LUNG CANCER
     Dosage: 50MG, DAILY, ORAL
     Route: 048
  9. CARDIZEM [Concomitant]

REACTIONS (3)
  - ATRIOVENTRICULAR BLOCK [None]
  - BRADYCARDIA [None]
  - DYSPNOEA [None]
